FAERS Safety Report 4537377-2 (Version None)
Quarter: 2004Q4

REPORT INFORMATION
  Report Type: 
  Country: None (occurrence: None)
  Receive Date: 20041223
  Receipt Date: 20041216
  Transmission Date: 20050328
  Serious: Yes (Death, Life-Threatening)
  Sender: FDA-Public Use
  Company Number: DE-ABBOTT-04P-062-0284107-00

PATIENT
  Sex: Male
  Weight: 71.5 kg

DRUGS (2)
  1. KLACID I.V. [Suspect]
     Indication: PNEUMONIA
     Route: 042
     Dates: start: 20031215, end: 20031217
  2. LEVOFLOXACIN [Concomitant]
     Indication: PNEUMONIA
     Route: 042
     Dates: start: 20031218, end: 20031219

REACTIONS (4)
  - PATHOGEN RESISTANCE [None]
  - RESPIRATORY DISORDER [None]
  - RESPIRATORY FAILURE [None]
  - SEPTIC SHOCK [None]
